FAERS Safety Report 9843813 (Version 1)
Quarter: 2013Q4

REPORT INFORMATION
  Report Type: Spontaneous
  Country: US (occurrence: None)
  Receive Date: 20131223
  Receipt Date: 20131223
  Transmission Date: 20140711
  Serious: Yes (Other)
  Sender: FDA-Public Use
  Company Number: 1000050247

PATIENT
  Age: 87 Year
  Sex: Male

DRUGS (16)
  1. LINZESS (LINACLOTIDE) (290 MICROGRAM, CAPSULES) [Suspect]
     Indication: CONSTIPATION
     Route: 048
     Dates: start: 20130817
  2. BISACODYL [Concomitant]
  3. EZETIMIBE [Concomitant]
  4. GLYBURIDE (GLIBENCLAMIDE) [Concomitant]
  5. LISINOPRIL [Concomitant]
  6. METFORMIN [Concomitant]
  7. OMEPRAZOLE [Concomitant]
  8. POTASSIUM [Concomitant]
  9. TAMSULOSIN [Concomitant]
  10. HYDROCODONE [Concomitant]
  11. AMLODIPINE [Concomitant]
  12. ATORVASTATIN [Concomitant]
  13. LANTUS (INSULIN GLARGINE) [Concomitant]
  14. FUROSEMIDE [Concomitant]
  15. TIZANIDINE [Concomitant]
  16. ZOLPIDEM [Concomitant]

REACTIONS (1)
  - Diarrhoea [None]
